FAERS Safety Report 5620052-0 (Version None)
Quarter: 2008Q1

REPORT INFORMATION
  Report Type: 
  Country: None (occurrence: None)
  Receive Date: 20080208
  Receipt Date: 20080130
  Transmission Date: 20080703
  Serious: Yes (Life-Threatening, Hospitalization)
  Sender: FDA-Public Use
  Company Number: DE-JNJFOC-20080104713

PATIENT
  Age: 78 Year
  Sex: Male

DRUGS (1)
  1. FENTANYL [Suspect]
     Indication: DRUG USE FOR UNKNOWN INDICATION
     Dosage: 5 X 50UG/HR PATCHES
     Route: 062

REACTIONS (5)
  - ACCIDENTAL OVERDOSE [None]
  - AMNESIA [None]
  - DRUG ADMINISTERED AT INAPPROPRIATE SITE [None]
  - DRUG PRESCRIBING ERROR [None]
  - NARCOTIC INTOXICATION [None]
